FAERS Safety Report 9961902 (Version 1)
Quarter: 2014Q1

REPORT INFORMATION
  Report Type: Report from Study
  Country: US (occurrence: US)
  Receive Date: 20140305
  Receipt Date: 20140305
  Transmission Date: 20141002
  Serious: No
  Sender: FDA-Public Use
  Company Number: US-ABBVIE-13P-163-1114592-00

PATIENT
  Sex: Male
  Weight: 91.71 kg

DRUGS (9)
  1. HUMIRA [Suspect]
     Indication: PSORIASIS
     Route: 058
     Dates: start: 201103, end: 20130623
  2. OLMESARTAN [Concomitant]
     Indication: PRODUCT USED FOR UNKNOWN INDICATION
  3. CLOBEX SPRAY  (CLOBETASOL SPRAY) [Concomitant]
     Indication: PRODUCT USED FOR UNKNOWN INDICATION
  4. FISH OIL [Concomitant]
     Indication: PRODUCT USED FOR UNKNOWN INDICATION
  5. DILTIAZEM [Concomitant]
     Indication: PRODUCT USED FOR UNKNOWN INDICATION
  6. VICTOZA [Concomitant]
     Indication: PRODUCT USED FOR UNKNOWN INDICATION
  7. JANUMET (SITAGLIIPTIN/METFORMIN) [Concomitant]
     Indication: PRODUCT USED FOR UNKNOWN INDICATION
  8. METOPROLOL [Concomitant]
     Indication: PRODUCT USED FOR UNKNOWN INDICATION
  9. VITAMIN B COMPLEX [Concomitant]
     Indication: PRODUCT USED FOR UNKNOWN INDICATION

REACTIONS (3)
  - Psoriasis [Not Recovered/Not Resolved]
  - Psoriasis [Not Recovered/Not Resolved]
  - Drug ineffective [Unknown]
